FAERS Safety Report 5872729-X (Version None)
Quarter: 2008Q3

REPORT INFORMATION
  Report Type: 
  Country: None (occurrence: None)
  Receive Date: 20080902
  Receipt Date: 20060109
  Transmission Date: 20090109
  Serious: Yes (Life-Threatening, Hospitalization)
  Sender: FDA-Public Use
  Company Number: 2008AL009338

PATIENT
  Age: 22 Year
  Sex: Male
  Weight: 62 kg

DRUGS (2)
  1. IBUPROFEN [Suspect]
     Dosage: PO
     Route: 048
  2. ACETAMINOPHEN W/ CODEINE [Concomitant]

REACTIONS (4)
  - LYMPHOPENIA [None]
  - NEUTROPENIA [None]
  - PLATELET COUNT DECREASED [None]
  - TOXIC EPIDERMAL NECROLYSIS [None]
